FAERS Safety Report 7555771-2 (Version None)
Quarter: 2011Q2

REPORT INFORMATION
  Report Type: 
  Country: None (occurrence: None)
  Receive Date: 20110618
  Receipt Date: 20110520
  Transmission Date: 20111010
  Serious: Yes (Hospitalization)
  Sender: FDA-Public Use
  Company Number: US-BAYER-2011-043250

PATIENT
  Age: 50 Year
  Sex: Male

DRUGS (10)
  1. SIMVASTATIN [Suspect]
  2. METFORMIN HCL [Suspect]
  3. TRICOR [Suspect]
  4. ACETYLSALICYLIC ACID SRT [Suspect]
  5. KLONOPIN [Concomitant]
  6. SITAGLIPTIN [Suspect]
  7. COGENTIN [Concomitant]
  8. FERROUS SULFATE TAB [Concomitant]
  9. ATENOLOL [Suspect]
  10. RISPERDAL [Concomitant]

REACTIONS (2)
  - RENAL FAILURE [None]
  - HYPERKALAEMIA [None]
